FAERS Safety Report 6460303-6 (Version None)
Quarter: 2009Q4

REPORT INFORMATION
  Report Type: 
  Country: None (occurrence: None)
  Receive Date: 20091130
  Receipt Date: 20091125
  Transmission Date: 20100525
  Serious: Yes (Death, Other)
  Sender: FDA-Public Use
  Company Number: PHHY2009BR51807

PATIENT
  Sex: Male

DRUGS (3)
  1. DIOVAN HCT [Suspect]
  2. HIDANTAL [Concomitant]
     Indication: EPILEPSY
     Dosage: 1 DF, BID
     Route: 048
  3. VERAMIL [Concomitant]
     Indication: HYPERTENSION
     Dosage: 1 DF, BID

REACTIONS (1)
  - CARDIO-RESPIRATORY ARREST [None]
